FAERS Safety Report 18047678 (Version 1)
Quarter: 2020Q3

REPORT INFORMATION
  Report Type: Spontaneous
  Country: US (occurrence: US)
  Receive Date: 20200720
  Receipt Date: 20200720
  Transmission Date: 20201103
  Serious: Yes (Hospitalization)
  Sender: FDA-Public Use
  Company Number: None

PATIENT
  Age: 48 Year
  Sex: Female

DRUGS (4)
  1. FEROSUL [Concomitant]
     Active Substance: FERROUS SULFATE
  2. OXYCODONE [Concomitant]
     Active Substance: OXYCODONE
  3. COSENTYX [Suspect]
     Active Substance: SECUKINUMAB
     Indication: PSORIATIC ARTHROPATHY
     Dosage: ?          OTHER DOSE:1 SYR (150MG);??FREQUENCY: Q4WK
     Route: 058
     Dates: start: 20190913
  4. METHOCRBAM [Concomitant]

REACTIONS (3)
  - Condition aggravated [None]
  - Therapy interrupted [None]
  - Spinal operation [None]

NARRATIVE: CASE EVENT DATE: 201912
